FAERS Safety Report 8432479-2 (Version None)
Quarter: 2012Q2

REPORT INFORMATION
  Report Type: 
  Country: None (occurrence: None)
  Receive Date: 20120613
  Receipt Date: 20120607
  Transmission Date: 20120825
  Serious: No
  Sender: FDA-Public Use
  Company Number: US-TEVA-342218USA

PATIENT
  Sex: Male
  Weight: 93.07 kg

DRUGS (4)
  1. LISINOPRIL [Concomitant]
     Indication: HYPERTENSION
  2. PROAIR HFA [Suspect]
     Indication: ASTHMA
     Route: 055
  3. FLUTICASONE PROPIONATE [Suspect]
     Indication: ASTHMA
     Dosage: 2 PUFFS
     Dates: start: 20120605
  4. TERAZOSIN HCL [Concomitant]
     Indication: BENIGN PROSTATIC HYPERPLASIA

REACTIONS (1)
  - DYSURIA [None]
